FAERS Safety Report 17082089 (Version 1)
Quarter: 2019Q4

REPORT INFORMATION
  Report Type: Spontaneous
  Country: JP (occurrence: JP)
  Receive Date: 20191127
  Receipt Date: 20191127
  Transmission Date: 20200122
  Serious: Yes (Other)
  Sender: FDA-Public Use
  Company Number: NVSJ2019JP004068

PATIENT
  Age: 76 Year
  Sex: Female

DRUGS (2)
  1. PRIMOBOLAN-DEPOT [Concomitant]
     Active Substance: METHENOLONE ENANTHATE
     Indication: PRODUCT USED FOR UNKNOWN INDICATION
     Dosage: UNK
     Route: 065
  2. JADENU [Suspect]
     Active Substance: DEFERASIROX
     Indication: APLASTIC ANAEMIA
     Dosage: UNK
     Route: 048

REACTIONS (3)
  - Haemoglobin decreased [Unknown]
  - Pruritus [Unknown]
  - Eosinophil count increased [Unknown]
